FAERS Safety Report 7267654-6 (Version None)
Quarter: 2011Q1

REPORT INFORMATION
  Report Type: 
  Country: None (occurrence: None)
  Receive Date: 20110201
  Receipt Date: 20110127
  Transmission Date: 20110831
  Serious: Yes (Hospitalization, Other)
  Sender: FDA-Public Use
  Company Number: CA-ABBOTT-11P-028-0701220-00

PATIENT
  Sex: Male
  Weight: 81.72 kg

DRUGS (2)
  1. HUMIRA [Suspect]
     Indication: CROHN'S DISEASE
     Route: 058
     Dates: start: 20100816, end: 20101101
  2. IMURAN [Concomitant]
     Indication: CROHN'S DISEASE
     Route: 048
     Dates: start: 20101201

REACTIONS (9)
  - TOOTH ABSCESS [None]
  - ANAL ABSCESS [None]
  - ACNE [None]
  - LOWER RESPIRATORY TRACT INFECTION [None]
  - GROIN ABSCESS [None]
  - NASOPHARYNGITIS [None]
  - SKIN IRRITATION [None]
  - INTESTINAL FISTULA [None]
  - HERPES ZOSTER [None]
